FAERS Safety Report 6265209-3 (Version None)
Quarter: 2009Q3

REPORT INFORMATION
  Report Type: 
  Country: None (occurrence: None)
  Receive Date: 20090713
  Receipt Date: 20090629
  Transmission Date: 20100115
  Serious: Yes (Hospitalization, Other)
  Sender: FDA-Public Use
  Company Number: US-ROCHE-640624

PATIENT
  Age: 55 Year
  Sex: Male
  Weight: 96 kg

DRUGS (11)
  1. RIBAVIRIN [Suspect]
     Route: 065
  2. RIBAVIRIN [Suspect]
     Dosage: DOSE REDUCED.
     Route: 065
  3. PEG-INTERFERON ALFA NOS [Suspect]
     Route: 065
  4. INSULIN [Suspect]
     Dosage: ROUTE: SUBCUTANEOUS INITIATED AND INCREASED DURING A 3 DAY PERIOD TO A DAILY DOSE OF 180 U
     Route: 050
  5. INSULIN [Suspect]
     Dosage: INFUSION STARTED AND TITRATED FOR 2 DAYS TO 52U/H
     Route: 050
  6. INSULIN [Suspect]
     Dosage: INCREASE IN INSULIN INFUSIONS TO 125 U/H, INTRAVENOUS
     Route: 050
  7. INSULIN [Suspect]
     Dosage: DOSE: 300 UNITS, DRUG NAME: U-500 INSULIN
     Route: 050
  8. INSULIN [Suspect]
     Dosage: DOSE 400 UNITS, DRUG NAME: U-500 INSULIN
     Route: 050
  9. INSULIN [Suspect]
     Dosage: DOSE REDUCED TO 50 U FOUR TIMES  A DAY
     Route: 050
  10. INSULIN [Suspect]
     Dosage: DOSE REDUCED TO 30 U
     Route: 050
  11. INSULIN [Suspect]
     Dosage: 15 U INSULIN DAILY
     Route: 050

REACTIONS (4)
  - ANAEMIA [None]
  - CRANIAL NEUROPATHY [None]
  - HYPOGLYCAEMIA [None]
  - INSULIN RESISTANT DIABETES [None]
